FAERS Safety Report 18518819 (Version 2)
Quarter: 2021Q1

REPORT INFORMATION
  Report Type: Report from Study
  Country: US (occurrence: US)
  Receive Date: 20201118
  Receipt Date: 20210222
  Transmission Date: 20210419
  Serious: Yes (Hospitalization, Other)
  Sender: FDA-Public Use
  Company Number: US-TAKEDA-2020TUS050343

PATIENT
  Sex: Female

DRUGS (2)
  1. 643 (LANADELUMAB) [Suspect]
     Active Substance: LANADELUMAB
     Indication: HEREDITARY ANGIOEDEMA
     Dosage: 3 MILLILITER, Q2WEEKS
     Route: 058
     Dates: start: 20190207
  2. 643 (LANADELUMAB) [Suspect]
     Active Substance: LANADELUMAB
     Dosage: 300 MILLIGRAM, 2/WEEK
     Route: 058
     Dates: start: 20190217

REACTIONS (3)
  - Skin cancer [Recovering/Resolving]
  - Cerebrovascular accident [Recovering/Resolving]
  - Product dose omission issue [Recovered/Resolved]
